FAERS Safety Report 17572331 (Version 1)
Quarter: 2020Q1

REPORT INFORMATION
  Report Type: Report from Study
  Country: IT (occurrence: IT)
  Receive Date: 20200323
  Receipt Date: 20200323
  Transmission Date: 20200409
  Serious: Yes (Other)
  Sender: FDA-Public Use
  Company Number: IT-PFIZER INC-2020119865

PATIENT
  Age: 78 Year
  Sex: Female

DRUGS (8)
  1. FOSAVANCE [Concomitant]
     Active Substance: ALENDRONATE SODIUM\CHOLECALCIFEROL
  2. PANTOPRAZOLO AUROBINDO [Concomitant]
     Active Substance: PANTOPRAZOLE SODIUM
  3. LASIX [Concomitant]
     Active Substance: FUROSEMIDE
  4. METHOTREXATE. [Suspect]
     Active Substance: METHOTREXATE
     Indication: RHEUMATOID ARTHRITIS
     Dosage: 10 MG, CYCLIC
     Route: 030
     Dates: start: 20190101, end: 20200103
  5. FOLINA [FOLIC ACID] [Concomitant]
     Active Substance: FOLIC ACID
  6. INDOXEN [Concomitant]
     Active Substance: INDOMETHACIN
  7. TRIATEC [RAMIPRIL] [Concomitant]
     Active Substance: RAMIPRIL
  8. CATAPRESAN TTS-2 SPECIFIC [Concomitant]
     Active Substance: CLONIDINE

REACTIONS (3)
  - Pruritus [Recovering/Resolving]
  - Face oedema [Recovering/Resolving]
  - Oropharyngeal pain [Recovering/Resolving]

NARRATIVE: CASE EVENT DATE: 20200103
